FAERS Safety Report 7638502-7 (Version None)
Quarter: 2011Q3

REPORT INFORMATION
  Report Type: 
  Country: None (occurrence: None)
  Receive Date: 20110727
  Receipt Date: 20110714
  Transmission Date: 20111222
  Serious: Yes (Other)
  Sender: FDA-Public Use
  Company Number: PHHY2011US60935

PATIENT
  Sex: Female

DRUGS (15)
  1. TEKTURNA [Suspect]
     Indication: CARDIAC FAILURE CONGESTIVE
  2. LIPITOR [Concomitant]
  3. TIMOLOL MALEATE [Concomitant]
  4. CALCIUM WITH VITAMIN D [Concomitant]
  5. ADVAIR DISKUS 100/50 [Concomitant]
  6. PROMETHAZINE [Concomitant]
  7. TYLENOL-500 [Concomitant]
  8. TEKTURNA [Suspect]
     Indication: HYPERTENSION
     Dosage: 150 MG, DAILY
  9. CARVEDILOL [Concomitant]
  10. FUROSEMIDE [Concomitant]
  11. DIGOXIN [Concomitant]
  12. XOPENEX [Concomitant]
  13. NEXIUM [Concomitant]
  14. ALENDRONATE SODIUM [Concomitant]
  15. AMLODIPINE BESYLATE [Concomitant]

REACTIONS (3)
  - PHLEBITIS [None]
  - BUNDLE BRANCH BLOCK [None]
  - CARDIOMYOPATHY [None]
